FAERS Safety Report 20702674 (Version 1)
Quarter: 2022Q2

REPORT INFORMATION
  Report Type: Spontaneous
  Country: MX (occurrence: None)
  Receive Date: 20220412
  Receipt Date: 20220412
  Transmission Date: 20220720
  Serious: Yes (Hospitalization)
  Sender: FDA-Public Use
  Company Number: MX-ROCHE-3072346

PATIENT
  Sex: Female

DRUGS (2)
  1. TOCILIZUMAB [Suspect]
     Active Substance: TOCILIZUMAB
     Indication: Still^s disease
     Dosage: DOSE AND FREQUENCY WERE NOT REPORTED
     Route: 065
  2. DEFLAZACORT [Concomitant]
     Active Substance: DEFLAZACORT

REACTIONS (5)
  - Hepatotoxicity [Recovered/Resolved]
  - Kidney infection [Recovered/Resolved]
  - Sepsis [Recovered/Resolved]
  - Serum ferritin increased [Unknown]
  - Inflammation [Unknown]
